FAERS Safety Report 6403364-2 (Version None)
Quarter: 2009Q4

REPORT INFORMATION
  Report Type: 
  Country: None (occurrence: None)
  Receive Date: 20091016
  Receipt Date: 20091007
  Transmission Date: 20100525
  Serious: Yes (Other)
  Sender: FDA-Public Use
  Company Number: US-MYLANLABS-2009S1017569

PATIENT
  Age: 52 Year
  Sex: Female

DRUGS (6)
  1. INSULIN GLARGINE [Suspect]
     Indication: DIABETES MELLITUS
     Route: 058
     Dates: start: 20090901
  2. GLIPIZIDE [Suspect]
     Indication: DIABETES MELLITUS
     Route: 048
     Dates: start: 20090801, end: 20090904
  3. GLIPIZIDE [Suspect]
     Route: 048
     Dates: start: 20090905
  4. METFORMIN HYDROCHLORIDE [Concomitant]
     Dates: end: 20090801
  5. ACTOS [Concomitant]
     Dates: end: 20090801
  6. BYETTA [Concomitant]
     Dates: end: 20090831

REACTIONS (1)
  - BLOOD GLUCOSE INCREASED [None]
